FAERS Safety Report 5880799-8 (Version None)
Quarter: 2008Q3

REPORT INFORMATION
  Report Type: 
  Country: None (occurrence: None)
  Receive Date: 20080912
  Receipt Date: 20080609
  Transmission Date: 20090109
  Serious: No
  Sender: FDA-Public Use
  Company Number: US-ABBOTT-08P-163-0456312-00

PATIENT
  Sex: Male
  Weight: 88.53 kg

DRUGS (7)
  1. HUMIRA [Suspect]
     Indication: CROHN'S DISEASE
     Route: 058
     Dates: start: 20080401
  2. ALLOPURINOL [Concomitant]
     Indication: GOUT
     Dates: start: 20060101
  3. PREDNISONE TAB [Concomitant]
     Indication: CROHN'S DISEASE
     Dates: start: 20060101
  4. LISINOPRIL [Concomitant]
     Indication: BLOOD PRESSURE
     Dates: start: 20060101
  5. CALCIUM [Concomitant]
     Indication: DRUG USE FOR UNKNOWN INDICATION
     Dates: start: 20060101
  6. MULTI-VITAMIN [Concomitant]
     Indication: DRUG USE FOR UNKNOWN INDICATION
     Dates: start: 20060101
  7. ERGOCALCIFEROL [Concomitant]
     Indication: DRUG USE FOR UNKNOWN INDICATION
     Dates: start: 20060101

REACTIONS (4)
  - MUSCLE TWITCHING [None]
  - NEUROPATHY PERIPHERAL [None]
  - PAIN IN EXTREMITY [None]
  - PARAESTHESIA [None]
